FAERS Safety Report 20601062 (Version 2)
Quarter: 2022Q2

REPORT INFORMATION
  Report Type: Spontaneous
  Country: TN (occurrence: TN)
  Receive Date: 20220316
  Receipt Date: 20220401
  Transmission Date: 20220721
  Serious: Yes (Hospitalization, Other)
  Sender: FDA-Public Use
  Company Number: TN-MACLEODS PHARMACEUTICALS US LTD-MAC2022034771

PATIENT

DRUGS (6)
  1. QUETIAPINE [Suspect]
     Active Substance: QUETIAPINE
     Indication: Psychotic symptom
     Dosage: 300 MILLIGRAM, QD
     Route: 065
     Dates: start: 20201222, end: 20210110
  2. QUETIAPINE [Suspect]
     Active Substance: QUETIAPINE
     Indication: Schizophrenia
     Dosage: 400 MILLIGRAM, QD
     Route: 065
     Dates: start: 20210111, end: 20210122
  3. QUETIAPINE [Suspect]
     Active Substance: QUETIAPINE
     Dosage: 400 MILLIGRAM, QD
     Route: 065
     Dates: start: 20210122
  4. VALPROIC ACID [Suspect]
     Active Substance: VALPROIC ACID
     Indication: Psychotic symptom
     Dosage: 1500 MILLIGRAM, QD
     Route: 065
     Dates: start: 20201222
  5. VALPROIC ACID [Suspect]
     Active Substance: VALPROIC ACID
     Indication: Schizophrenia
     Dosage: 1500 MILLIGRAM, QD
     Route: 065
     Dates: start: 20210111, end: 20210122
  6. VALPROIC ACID [Suspect]
     Active Substance: VALPROIC ACID
     Dosage: 1500 MILLIGRAM, QD
     Route: 065
     Dates: start: 20210122

REACTIONS (5)
  - Thrombocytopenic purpura [Recovered/Resolved]
  - Haematotoxicity [Recovered/Resolved]
  - Insomnia [Recovering/Resolving]
  - Irritability [Recovering/Resolving]
  - Anxiety [Recovering/Resolving]

NARRATIVE: CASE EVENT DATE: 20210101
